FAERS Safety Report 22216612 (Version 6)
Quarter: 2024Q4

REPORT INFORMATION
  Report Type: Report from Study
  Country: DE (occurrence: DE)
  Receive Date: 20230417
  Receipt Date: 20241111
  Transmission Date: 20250115
  Serious: Yes (Hospitalization)
  Sender: ROCHE
  Company Number: DE-ROCHE-2863946

PATIENT
  Age: 51 Year
  Sex: Female

DRUGS (12)
  1. OCREVUS [Suspect]
     Active Substance: OCRELIZUMAB
     Indication: Relapsing-remitting multiple sclerosis
     Dosage: 600 MG IN 182, 210 DAYS
     Route: 042
     Dates: start: 20200205
  2. OCREVUS [Suspect]
     Active Substance: OCRELIZUMAB
     Dosage: SUBSEQUENT DOSE ON /OCT/2021?600 MG EVERY 226 DAYS
     Route: 042
     Dates: start: 20200805
  3. COMIRNATY (TOZINAMERAN) [Suspect]
     Active Substance: TOZINAMERAN
     Indication: Product used for unknown indication
     Route: 065
  4. MODAFINIL [Concomitant]
     Active Substance: MODAFINIL
     Dosage: 1 IN THE MORNING, IN THE AFTERNOON AS NEEDED
  5. LEVOTHYROXINE [Concomitant]
     Active Substance: LEVOTHYROXINE
  6. RAMIPRIL [Concomitant]
     Active Substance: RAMIPRIL
  7. METOPROLOL [Concomitant]
     Active Substance: METOPROLOL
     Dosage: SLOW-RELEASE
  8. DALFAMPRIDINE [Concomitant]
     Active Substance: DALFAMPRIDINE
  9. SPASMEX (GERMANY) [Concomitant]
  10. TRAMADOL [Concomitant]
     Active Substance: TRAMADOL
  11. DRONABINOL [Concomitant]
     Active Substance: DRONABINOL
     Dosage: 5-3-5 PUFFS
  12. PROPIVERINE HYDROCHLORIDE [Concomitant]
     Active Substance: PROPIVERINE HYDROCHLORIDE
     Dosage: 1-0-0

REACTIONS (13)
  - Fatigue [Recovered/Resolved]
  - Arthralgia [Recovering/Resolving]
  - Joint range of motion decreased [Recovering/Resolving]
  - Gait disturbance [Not Recovered/Not Resolved]
  - Blood urine present [Not Recovered/Not Resolved]
  - Urine analysis abnormal [Not Recovered/Not Resolved]
  - Bladder dysfunction [Recovering/Resolving]
  - Hypokinesia [Recovered/Resolved]
  - Dry mouth [Recovered/Resolved]
  - Depressed mood [Recovering/Resolving]
  - COVID-19 [Recovered/Resolved]
  - B-lymphocyte count decreased [Recovered/Resolved]
  - Spinal pain [Not Recovered/Not Resolved]

NARRATIVE: CASE EVENT DATE: 20200601
